FAERS Safety Report 7320169-9 (Version None)
Quarter: 2011Q1

REPORT INFORMATION
  Report Type: 
  Country: None (occurrence: None)
  Receive Date: 20110228
  Receipt Date: 20110216
  Transmission Date: 20110831
  Serious: Yes (Other)
  Sender: FDA-Public Use
  Company Number: PHHY2010US77833

PATIENT
  Sex: Female
  Weight: 65 kg

DRUGS (6)
  1. RECLAST [Suspect]
     Indication: OSTEOPOROSIS
     Dosage: ONCE
     Dates: start: 20101015, end: 20101019
  2. ADVAIR DISKUS 100/50 [Concomitant]
  3. PRILOSEC [Concomitant]
  4. ZANTAC [Concomitant]
  5. SINGULAIR [Concomitant]
  6. PRAVACHOL [Concomitant]

REACTIONS (6)
  - CONSTIPATION [None]
  - INTESTINAL DILATATION [None]
  - ILEUS PARALYTIC [None]
  - ABDOMINAL PAIN [None]
  - INTESTINAL OBSTRUCTION [None]
  - VOMITING [None]
